FAERS Safety Report 6705270-2 (Version None)
Quarter: 2010Q2

REPORT INFORMATION
  Report Type: 
  Country: None (occurrence: None)
  Receive Date: 20100430
  Receipt Date: 20100428
  Transmission Date: 20101027
  Serious: Yes (Death, Other)
  Sender: FDA-Public Use
  Company Number: JP-ROCHE-618206

PATIENT
  Sex: Female
  Weight: 34.7 kg

DRUGS (18)
  1. TOCILIZUMAB [Suspect]
     Indication: RHEUMATOID ARTHRITIS
     Route: 041
     Dates: start: 20080717, end: 20080717
  2. TOCILIZUMAB [Suspect]
     Route: 041
     Dates: start: 20080814, end: 20080814
  3. TOCILIZUMAB [Suspect]
     Route: 041
     Dates: start: 20080911, end: 20080911
  4. TOCILIZUMAB [Suspect]
     Route: 041
     Dates: start: 20081009, end: 20081009
  5. TOCILIZUMAB [Suspect]
     Route: 041
     Dates: start: 20081030, end: 20081030
  6. TOCILIZUMAB [Suspect]
     Route: 041
     Dates: start: 20081125, end: 20081125
  7. TOCILIZUMAB [Suspect]
     Route: 041
     Dates: start: 20081225, end: 20081225
  8. TOCILIZUMAB [Suspect]
     Route: 041
     Dates: start: 20090122, end: 20090514
  9. AZULFIDINE [Concomitant]
     Route: 048
  10. PREDNISOLONE [Concomitant]
     Dosage: DRUG: PREDOHAN
     Route: 048
     Dates: end: 20081029
  11. PREDNISOLONE [Concomitant]
     Route: 048
     Dates: start: 20081030, end: 20081124
  12. KETOPROFEN [Concomitant]
     Dosage: DRUG RPTD: MOHRUS TAPE, FORM: TAPE, NOTE: DOSAGE ADJUSTED
     Route: 061
     Dates: end: 20080911
  13. ADRENAL CORTEX EXTRACT [Concomitant]
     Dosage: DRUG: ZESTAK (ADRENAL EXTRACT_SALICYLIC ACID COMBINED DRUG), FORM: OINTMENT AND CREAM
     Route: 061
     Dates: end: 20080717
  14. NEOISCOTIN [Concomitant]
     Dosage: NOTE: MONDAY AND THURSDAY
     Route: 048
     Dates: start: 20080717
  15. PYRIDOXAL PHOSPHATE [Concomitant]
     Dosage: NOTE: MONDAY AND THURSDAY
     Route: 048
     Dates: start: 20080717
  16. PASIL [Concomitant]
     Route: 041
     Dates: start: 20080717, end: 20080717
  17. PREDNISOLONE [Concomitant]
     Route: 048
     Dates: start: 20081030, end: 20081124
  18. PREDNISOLONE [Concomitant]
     Route: 048
     Dates: start: 20081125

REACTIONS (3)
  - AORTIC ANEURYSM RUPTURE [None]
  - HYPERLIPIDAEMIA [None]
  - RESPIRATORY FAILURE [None]
